FAERS Safety Report 17276044 (Version 1)
Quarter: 2020Q1

REPORT INFORMATION
  Report Type: Spontaneous
  Country: FR (occurrence: FR)
  Receive Date: 20200116
  Receipt Date: 20200116
  Transmission Date: 20200409
  Serious: Yes (Congenital Anomaly)
  Sender: FDA-Public Use
  Company Number: FR-ROCHE-2518710

PATIENT
  Sex: Female

DRUGS (3)
  1. DEPAKINE [VALPROIC ACID] [Suspect]
     Active Substance: VALPROIC ACID
     Indication: EPILEPSY
     Route: 064
     Dates: start: 20010815, end: 20020430
  2. ACIDE FOLIQUE [Concomitant]
     Active Substance: FOLIC ACID
  3. RIVOTRIL [Suspect]
     Active Substance: CLONAZEPAM
     Indication: GENERALISED TONIC-CLONIC SEIZURE
     Dosage: 2,5 MG/ML, SOLUTION
     Route: 064
     Dates: start: 20010815, end: 20020430

REACTIONS (10)
  - Foetal anticonvulsant syndrome [Not Recovered/Not Resolved]
  - Gait disturbance [Not Recovered/Not Resolved]
  - Cardiac murmur [Not Recovered/Not Resolved]
  - Disturbance in attention [Not Recovered/Not Resolved]
  - Language disorder [Not Recovered/Not Resolved]
  - Intellectual disability [Not Recovered/Not Resolved]
  - Dysmorphism [Not Recovered/Not Resolved]
  - Palatal disorder [Not Recovered/Not Resolved]
  - Foetal exposure during pregnancy [Unknown]
  - Kyphosis [Not Recovered/Not Resolved]

NARRATIVE: CASE EVENT DATE: 2004
